FAERS Safety Report 7320662-9 (Version None)
Quarter: 2011Q1

REPORT INFORMATION
  Report Type: 
  Country: None (occurrence: None)
  Receive Date: 20110228
  Receipt Date: 20110215
  Transmission Date: 20110831
  Serious: Yes (Other)
  Sender: FDA-Public Use
  Company Number: US-ROCHE-734308

PATIENT
  Sex: Female
  Weight: 74.8 kg

DRUGS (6)
  1. ACCUTANE [Suspect]
     Route: 065
     Dates: start: 20050101, end: 20061231
  2. DOXYCYCLINE [Concomitant]
  3. LISINOPRIL [Concomitant]
  4. ACCUTANE [Suspect]
     Indication: ACNE
     Route: 065
     Dates: start: 20030101, end: 20040101
  5. INSULIN [Concomitant]
  6. VYTORIN [Concomitant]

REACTIONS (5)
  - DEPRESSION [None]
  - GASTROINTESTINAL INJURY [None]
  - SUICIDAL IDEATION [None]
  - COLITIS ULCERATIVE [None]
  - IRRITABLE BOWEL SYNDROME [None]
